FAERS Safety Report 6343910-0 (Version None)
Quarter: 2009Q3

REPORT INFORMATION
  Report Type: 
  Country: None (occurrence: None)
  Receive Date: 20090908
  Receipt Date: 20090826
  Transmission Date: 20100115
  Serious: Yes (Disabling, Other)
  Sender: FDA-Public Use
  Company Number: US-PFIZER INC-2009252397

PATIENT
  Sex: Female
  Weight: 68.027 kg

DRUGS (8)
  1. XANAX [Suspect]
     Indication: ANXIETY
     Dosage: 0.75 MG, AS NEEDED
     Dates: start: 19900101
  2. XANAX [Suspect]
     Indication: PANIC DISORDER
  3. SINEQUAN [Suspect]
  4. VASOTEC [Concomitant]
  5. AVAPRO [Concomitant]
  6. ZOCOR [Concomitant]
  7. CLONIDINE [Concomitant]
  8. ASPIRIN [Concomitant]

REACTIONS (9)
  - APHASIA [None]
  - BLOOD CHOLESTEROL INCREASED [None]
  - CEREBRAL HAEMORRHAGE [None]
  - CEREBROVASCULAR ACCIDENT [None]
  - DRUG INEFFECTIVE [None]
  - HEADACHE [None]
  - HYPERTENSION [None]
  - MYOCARDIAL INFARCTION [None]
  - WEIGHT INCREASED [None]
